FAERS Safety Report 5487352-9 (Version None)
Quarter: 2007Q4

REPORT INFORMATION
  Report Type: 
  Country: None (occurrence: None)
  Receive Date: 20071016
  Receipt Date: 20071016
  Transmission Date: 20080405
  Serious: Yes (Other)
  Sender: FDA-Public Use
  Company Number: US-ROXANE LABORATORIES, INC-2007-DE-06075GD

PATIENT
  Sex: Female

DRUGS (11)
  1. IBUPROFEN [Suspect]
     Indication: MIGRAINE
  2. OXYCODONE AND ACETAMINOPHEN [Suspect]
     Indication: MIGRAINE
  3. SUMATRIPTAN SUCCINATE [Suspect]
     Indication: MIGRAINE
  4. VENLAFAXINE HCL [Concomitant]
  5. DESIPRAMINE HCL [Concomitant]
  6. CLONAZEPAM [Concomitant]
  7. MONTELUKAST SODIUM [Concomitant]
  8. TEGASEROD [Concomitant]
  9. LORATADINE [Concomitant]
  10. LANSOPRAZOLE [Concomitant]
  11. BOTULINUM TOXIN A [Concomitant]
     Indication: TORTICOLLIS

REACTIONS (1)
  - HEADACHE [None]
